FAERS Safety Report 17542870 (Version 1)
Quarter: 2020Q1

REPORT INFORMATION
  Report Type: Report from Study
  Country: None (occurrence: CA)
  Receive Date: 20200315
  Receipt Date: 20200315
  Transmission Date: 20200409
  Serious: Yes (Other)
  Sender: FDA-Public Use
  Company Number: CA-ABBVIE-20K-028-3315881-00

PATIENT
  Sex: Male

DRUGS (1)
  1. HUMIRA [Suspect]
     Active Substance: ADALIMUMAB
     Indication: CROHN^S DISEASE
     Route: 058
     Dates: start: 20130206

REACTIONS (9)
  - Intestinal resection [Unknown]
  - Discomfort [Not Recovered/Not Resolved]
  - Urticaria [Recovered/Resolved]
  - Herpes zoster [Recovered/Resolved]
  - Gastrointestinal sounds abnormal [Unknown]
  - Abdominal adhesions [Not Recovered/Not Resolved]
  - Intestinal obstruction [Unknown]
  - Urticaria [Recovered/Resolved]
  - Pain [Not Recovered/Not Resolved]

NARRATIVE: CASE EVENT DATE: 2020
